FAERS Safety Report 7738140-1 (Version None)
Quarter: 2011Q3

REPORT INFORMATION
  Report Type: 
  Country: None (occurrence: None)
  Receive Date: 20110908
  Receipt Date: 20110822
  Transmission Date: 20111222
  Serious: Yes (Other)
  Sender: FDA-Public Use
  Company Number: US-BAYER-2011-079642

PATIENT
  Age: 67 Year
  Sex: Female
  Weight: 81.633 kg

DRUGS (1)
  1. ALEVE (CAPLET) [Suspect]
     Indication: ARTHRITIS
     Dosage: 3 DF, BID, BOTTLE COUNT 250S
     Route: 048
     Dates: start: 20110808

REACTIONS (1)
  - EYE DISORDER [None]
